FAERS Safety Report 13977841 (Version 1)
Quarter: 2017Q3

REPORT INFORMATION
  Report Type: Spontaneous
  Country: US (occurrence: None)
  Receive Date: 20170915
  Receipt Date: 20170915
  Transmission Date: 20171128
  Serious: Yes (Hospitalization)
  Sender: FDA-Public Use
  Company Number: None

PATIENT
  Age: 48 Year
  Sex: Male
  Weight: 53.9 kg

DRUGS (2)
  1. 5-FLUOROURACIL (5-FU) [Suspect]
     Active Substance: FLUOROURACIL
     Dates: end: 20170901
  2. CISPLATIN. [Suspect]
     Active Substance: CISPLATIN
     Dates: end: 20170828

REACTIONS (6)
  - Diarrhoea [None]
  - Pyrexia [None]
  - Loss of consciousness [None]
  - Hypotension [None]
  - Syncope [None]
  - Haemoglobin decreased [None]

NARRATIVE: CASE EVENT DATE: 20170904
